FAERS Safety Report 12481778 (Version 1)
Quarter: 2016Q2

REPORT INFORMATION
  Report Type: Spontaneous
  Country: US (occurrence: US)
  Receive Date: 20160620
  Receipt Date: 20160620
  Transmission Date: 20160815
  Serious: No
  Sender: FDA-Public Use
  Company Number: US-BAYER-2016-114211

PATIENT
  Age: 30 Year
  Sex: Female

DRUGS (1)
  1. MIRENA [Suspect]
     Active Substance: LEVONORGESTREL
     Indication: CONTRACEPTION
     Dosage: 20 MCG/24HR, CONT
     Route: 015
     Dates: start: 20160528

REACTIONS (5)
  - Procedural pain [None]
  - Vulvovaginal swelling [None]
  - Vulvovaginal pain [None]
  - Migraine [None]
  - Photophobia [None]

NARRATIVE: CASE EVENT DATE: 2016
